FAERS Safety Report 24526957 (Version 2)
Quarter: 2024Q4

REPORT INFORMATION
  Report Type: Spontaneous
  Country: CL (occurrence: CL)
  Receive Date: 20241021
  Receipt Date: 20241108
  Transmission Date: 20250114
  Serious: Yes (Death)
  Sender: BEIGENE
  Company Number: CL-BEIGENE-BGN-2024-016633

PATIENT

DRUGS (1)
  1. BRUKINSA [Suspect]
     Active Substance: ZANUBRUTINIB
     Indication: Marginal zone lymphoma

REACTIONS (1)
  - Death [Fatal]
